FAERS Safety Report 4821609-7 (Version None)
Quarter: 2005Q4

REPORT INFORMATION
  Report Type: 
  Country: None (occurrence: None)
  Receive Date: 20051107
  Receipt Date: 20050414
  Transmission Date: 20060501
  Serious: Yes (Other)
  Sender: FDA-Public Use
  Company Number: US-MERCK-0504USA02976

PATIENT
  Age: 52 Year
  Sex: Female
  Weight: 55 kg

DRUGS (19)
  1. VIOXX [Suspect]
     Indication: BACK PAIN
     Route: 048
     Dates: start: 20000614, end: 20040927
  2. VIOXX [Suspect]
     Indication: OSTEOARTHRITIS
     Route: 048
     Dates: start: 20000614, end: 20040927
  3. DIOVAN [Concomitant]
     Route: 065
     Dates: start: 19990204
  4. DARVOCET-N 100 [Concomitant]
     Route: 065
     Dates: start: 19980923
  5. FOLTX [Concomitant]
     Route: 065
  6. TOPROL-XL [Concomitant]
     Route: 065
     Dates: start: 19990302
  7. LIPITOR [Concomitant]
     Route: 065
     Dates: start: 19990211, end: 20041001
  8. ROBAXIN [Concomitant]
     Route: 065
  9. HYDRODIURIL [Concomitant]
     Route: 065
     Dates: start: 19971117
  10. WELLBUTRIN [Concomitant]
     Route: 065
  11. PLAVIX [Concomitant]
     Route: 065
     Dates: start: 19991124
  12. XANAX [Concomitant]
     Route: 065
  13. KLOR-CON [Concomitant]
     Route: 065
  14. FOLBEE [Concomitant]
     Route: 065
  15. PREMARIN [Concomitant]
     Route: 065
     Dates: start: 19700101
  16. ELAVIL [Concomitant]
     Route: 065
  17. ZANTAC [Concomitant]
     Route: 065
  18. MOTRIN [Concomitant]
     Route: 065
  19. POTASSIUM CHLORIDE [Concomitant]
     Route: 065

REACTIONS (2)
  - CEREBROVASCULAR ACCIDENT [None]
  - GASTROOESOPHAGEAL REFLUX DISEASE [None]
